FAERS Safety Report 7030539-4 (Version None)
Quarter: 2010Q4

REPORT INFORMATION
  Report Type: 
  Country: None (occurrence: None)
  Receive Date: 20101006
  Receipt Date: 20100929
  Transmission Date: 20110411
  Serious: Yes (Other)
  Sender: FDA-Public Use
  Company Number: ZA-JNJFOC-20100908621

PATIENT
  Age: 74 Year
  Sex: Male

DRUGS (4)
  1. TAVANIC [Suspect]
     Indication: PRODUCT USED FOR UNKNOWN INDICATION
     Route: 042
  2. TAVANIC [Suspect]
     Route: 048
  3. TAMSULOSIN [Concomitant]
     Route: 065
  4. ANTIHYPERTENSIVES [Concomitant]
     Route: 065

REACTIONS (3)
  - ANGIOEDEMA [None]
  - BRONCHOSPASM [None]
  - SWELLING FACE [None]
